FAERS Safety Report 14315073 (Version 1)
Quarter: 2017Q4

REPORT INFORMATION
  Report Type: Spontaneous
  Country: CH (occurrence: CH)
  Receive Date: 20171221
  Receipt Date: 20171221
  Transmission Date: 20180321
  Serious: Yes (Life-Threatening, Hospitalization)
  Sender: FDA-Public Use
  Company Number: CH-BAYER-2017-241076

PATIENT
  Age: 80 Year
  Sex: Female

DRUGS (8)
  1. XYLOCAINE [Concomitant]
     Active Substance: LIDOCAINE HYDROCHLORIDE
     Dosage: 1 ML, ONCE
     Route: 008
     Dates: start: 20171108, end: 20171108
  2. KENACORT [Concomitant]
     Active Substance: TRIAMCINOLONE
     Dosage: 40 ML, ONCE
     Route: 008
     Dates: start: 20171108, end: 20171108
  3. EUTHYROX [Concomitant]
     Active Substance: LEVOTHYROXINE SODIUM
     Dosage: 0.05 MG, QD
     Route: 048
  4. MG 5-GRANORAL [Concomitant]
     Dosage: 12 MMOL, QD
     Route: 048
  5. FENTANYL. [Concomitant]
     Active Substance: FENTANYL
     Route: 041
     Dates: start: 20171108, end: 20171108
  6. GADOVIST [Suspect]
     Active Substance: GADOBUTROL
     Indication: IMAGING PROCEDURE
     Dosage: 1 ML, ONCE; INTRATHECAL INSTEAD OF EPIDURAL;
     Route: 037
     Dates: start: 20171108, end: 20171108
  7. APIXABAN [Concomitant]
     Active Substance: APIXABAN
     Dosage: 2.5 MG, BID
     Route: 048
  8. CORDARONE [Concomitant]
     Active Substance: AMIODARONE HYDROCHLORIDE
     Dosage: 50 MG, QD
     Route: 048

REACTIONS (3)
  - Off label use [Recovered/Resolved]
  - Incorrect route of drug administration [Recovered/Resolved]
  - Toxic encephalopathy [Recovered/Resolved]

NARRATIVE: CASE EVENT DATE: 20171108
